FAERS Safety Report 7318581-7 (Version None)
Quarter: 2011Q1

REPORT INFORMATION
  Report Type: 
  Country: None (occurrence: None)
  Receive Date: 20110228
  Receipt Date: 20110218
  Transmission Date: 20110831
  Serious: Yes (Hospitalization, Other)
  Sender: FDA-Public Use
  Company Number: CZ-US-EMD SERONO, INC.-E2B_7042794

PATIENT
  Age: 38 Year
  Sex: Female

DRUGS (6)
  1. PREDNISONE [Concomitant]
     Indication: PRODUCT USED FOR UNKNOWN INDICATION
     Dates: start: 20090801
  2. GONAL-F [Suspect]
     Dosage: STANDARD DOSE FOR IVF
     Dates: start: 20090801
  3. CETROTIDE [Concomitant]
     Indication: PRODUCT USED FOR UNKNOWN INDICATION
     Dates: start: 20090801
  4. UTROGESTAN [Concomitant]
     Indication: INFERTILITY FEMALE
     Dosage: 1-0-1
     Dates: start: 20090401
  5. PREGNYL [Concomitant]
     Indication: INFERTILITY FEMALE
     Dates: start: 20090401, end: 20090601
  6. GONAL-F [Suspect]
     Indication: IN VITRO FERTILISATION
     Dosage: DOSE WAS INCREASED DUE TO NON-RESPONDER
     Dates: start: 20091101, end: 20090101

REACTIONS (1)
  - ACUTE MYELOID LEUKAEMIA [None]
